FAERS Safety Report 9665636 (Version 2)
Quarter: 2013Q4

REPORT INFORMATION
  Report Type: Spontaneous
  Country: NL (occurrence: NL)
  Receive Date: 20131104
  Receipt Date: 20131104
  Transmission Date: 20140711
  Serious: Yes (Other)
  Sender: FDA-Public Use
  Company Number: NL-ABBVIE-11P-114-0836716-00

PATIENT
  Age: 57 Year
  Sex: Male

DRUGS (1)
  1. LOPINAVIR/RITONAVIR [Suspect]
     Indication: HIV INFECTION
     Dosage: 50/200 TWICE DAILY
     Dates: start: 2001

REACTIONS (1)
  - Drug resistance [Recovered/Resolved]
